FAERS Safety Report 4950688-1 (Version None)
Quarter: 2006Q1

REPORT INFORMATION
  Report Type: 
  Country: None (occurrence: None)
  Receive Date: 20060321
  Receipt Date: 20060321
  Transmission Date: 20060701
  Serious: Yes (Other)
  Sender: FDA-Public Use
  Company Number: None

PATIENT
  Age: 73 Year
  Sex: Male
  Weight: 103.4 kg

DRUGS (9)
  1. LOPID [Suspect]
  2. FLUVASTATIN [Concomitant]
  3. NIACIN (NIASPAN-KOS) [Concomitant]
  4. LISINOPRIL [Concomitant]
  5. ALOPURINOL [Concomitant]
  6. INDOMETHACIN [Concomitant]
  7. OMEPRAZOLE [Concomitant]
  8. GEMFIBROZIL [Concomitant]
  9. RANITIDINE HCL [Concomitant]

REACTIONS (1)
  - DELIRIUM [None]
